FAERS Safety Report 6426472-9 (Version None)
Quarter: 2009Q4

REPORT INFORMATION
  Report Type: 
  Country: None (occurrence: None)
  Receive Date: 20091103
  Receipt Date: 20091103
  Transmission Date: 20100525
  Serious: Yes (Other)
  Sender: FDA-Public Use
  Company Number: None

PATIENT
  Sex: Female
  Weight: 63.5036 kg

DRUGS (1)
  1. ZICAM NASAL COLD REMEDY MATRIXX INITIATIVES INC. [Suspect]
     Indication: NASOPHARYNGITIS
     Dates: start: 20000101, end: 20090915

REACTIONS (3)
  - ANOSMIA [None]
  - HEADACHE [None]
  - NASAL DISCOMFORT [None]
